FAERS Safety Report 19478837 (Version 1)
Quarter: 2021Q2

REPORT INFORMATION
  Report Type: Spontaneous
  Country: GB (occurrence: GB)
  Receive Date: 20210630
  Receipt Date: 20210630
  Transmission Date: 20210717
  Serious: Yes (Disabling)
  Sender: FDA-Public Use
  Company Number: GB-ALLERGAN-2124298US

PATIENT
  Sex: Female
  Weight: 82.55 kg

DRUGS (1)
  1. ESCITALOPRAM OXALATE ? BP [Suspect]
     Active Substance: ESCITALOPRAM OXALATE
     Indication: DEPRESSION
     Dosage: 10 G
     Route: 048
     Dates: start: 20210622, end: 20210623

REACTIONS (2)
  - Overdose [Unknown]
  - Suicidal ideation [Unknown]
